FAERS Safety Report 25893233 (Version 2)
Quarter: 2025Q4

REPORT INFORMATION
  Report Type: Spontaneous
  Country: JP (occurrence: JP)
  Receive Date: 20251008
  Receipt Date: 20251016
  Transmission Date: 20260118
  Serious: Yes (Other)
  Sender: MITSUBISHI TANABE PHARMA
  Company Number: JP-MTPC-MTPC2025-0017779

PATIENT
  Age: 37 Year
  Sex: Male

DRUGS (4)
  1. NOVASTAN [Suspect]
     Active Substance: ARGATROBAN
     Indication: Moyamoya disease
     Route: 065
  2. NOVASTAN [Suspect]
     Active Substance: ARGATROBAN
     Indication: Cerebral infarction
  3. EDARAVONE [Suspect]
     Active Substance: EDARAVONE
     Indication: Moyamoya disease
     Route: 065
  4. EDARAVONE [Suspect]
     Active Substance: EDARAVONE
     Indication: Cerebral infarction

REACTIONS (2)
  - Cerebral infarction [Unknown]
  - Drug ineffective [Unknown]
